FAERS Safety Report 20687700 (Version 1)
Quarter: 2022Q2

REPORT INFORMATION
  Report Type: Report from Study
  Country: US (occurrence: US)
  Receive Date: 20220408
  Receipt Date: 20220408
  Transmission Date: 20220721
  Serious: Yes (Other)
  Sender: FDA-Public Use
  Company Number: US-BRISTOL-MYERS SQUIBB COMPANY-2022-014747

PATIENT
  Age: 72 Year
  Sex: Female
  Weight: 58.967 kg

DRUGS (1)
  1. REVLIMID [Suspect]
     Active Substance: LENALIDOMIDE
     Indication: Plasma cell myeloma in remission
     Dosage: DAILY ON DAYS 1-21 FOR EVERY 28 DAYS
     Route: 048
     Dates: start: 20200408

REACTIONS (1)
  - Corneal epithelium defect [Unknown]
